FAERS Safety Report 6372440-5 (Version None)
Quarter: 2009Q3

REPORT INFORMATION
  Report Type: 
  Country: None (occurrence: None)
  Receive Date: 20090924
  Receipt Date: 20090313
  Transmission Date: 20100115
  Serious: No
  Sender: FDA-Public Use
  Company Number: US-ASTRAZENECA-2008UW16241

PATIENT
  Age: 11 Year
  Sex: Female
  Weight: 83.9 kg

DRUGS (3)
  1. SEROQUEL [Suspect]
     Indication: ATTENTION DEFICIT/HYPERACTIVITY DISORDER
     Dosage: 25 MG, 100 MG, 200 MG
     Route: 048
     Dates: start: 20030101, end: 20050801
  2. SEROQUEL [Suspect]
     Indication: OPPOSITIONAL DEFIANT DISORDER
     Dosage: 25 MG, 100 MG, 200 MG
     Route: 048
     Dates: start: 20030101, end: 20050801
  3. ZYPREXA [Concomitant]
     Dates: start: 20030101

REACTIONS (3)
  - DEPRESSION [None]
  - OBESITY [None]
  - TYPE 2 DIABETES MELLITUS [None]
